FAERS Safety Report 16013873 (Version 1)
Quarter: 2019Q1

REPORT INFORMATION
  Report Type: Spontaneous
  Country: KR (occurrence: KR)
  Receive Date: 20190227
  Receipt Date: 20190227
  Transmission Date: 20190418
  Serious: Yes (Hospitalization, Other)
  Sender: FDA-Public Use
  Company Number: KR-ELI_LILLY_AND_COMPANY-KR201902010040

PATIENT
  Sex: Female

DRUGS (6)
  1. ALIMTA [Suspect]
     Active Substance: PEMETREXED DISODIUM
     Dosage: UNK UNK, CYCLICAL 2ND
     Route: 065
     Dates: start: 20180519
  2. CISPLATINE [Concomitant]
     Active Substance: CISPLATIN
     Indication: NON-SMALL CELL LUNG CANCER
     Dosage: UNK UNK, UNKNOWN, 1ST
     Route: 065
     Dates: start: 20180429
  3. CISPLATINE [Concomitant]
     Active Substance: CISPLATIN
     Dosage: UNK UNK, UNKNOWN, 3RD
     Route: 065
     Dates: start: 20180612
  4. ALIMTA [Suspect]
     Active Substance: PEMETREXED DISODIUM
     Indication: NON-SMALL CELL LUNG CANCER
     Dosage: UNK UNK, CYCLICAL, 1ST
     Route: 065
     Dates: start: 20180429
  5. ALIMTA [Suspect]
     Active Substance: PEMETREXED DISODIUM
     Dosage: UNK UNK, CYCLICAL 3RD
     Route: 065
     Dates: start: 20180612
  6. CISPLATINE [Concomitant]
     Active Substance: CISPLATIN
     Dosage: UNK UNK, UNKNOWN, 2ND
     Route: 065
     Dates: start: 20180519

REACTIONS (4)
  - Dyspnoea [Unknown]
  - Malignant neoplasm progression [Unknown]
  - Acute respiratory failure [Recovered/Resolved]
  - Hypoxia [Unknown]
